FAERS Safety Report 22156795 (Version 9)
Quarter: 2023Q2

REPORT INFORMATION
  Report Type: Spontaneous
  Country: US (occurrence: US)
  Receive Date: 20230330
  Receipt Date: 20230622
  Transmission Date: 20230721
  Serious: Yes (Hospitalization, Other)
  Sender: FDA-Public Use
  Company Number: US-PFIZER INC-PV202300045470

PATIENT
  Age: 89 Year
  Sex: Male

DRUGS (8)
  1. BRAFTOVI [Suspect]
     Active Substance: ENCORAFENIB
     Indication: Malignant melanoma
     Dosage: 75 MG
     Route: 048
  2. BRAFTOVI [Suspect]
     Active Substance: ENCORAFENIB
     Indication: Metastatic malignant melanoma
     Dosage: 900 MG, 2X/DAY (3 TABLETS BY MOUTH TWICE A DAILY )
     Route: 048
  3. BRAFTOVI [Suspect]
     Active Substance: ENCORAFENIB
     Dosage: 300 MG, 1X/DAY (TAKE 4 CAPS (300MG TOTAL) BY MOUTH ONCE A DAY)
     Route: 048
     Dates: end: 202303
  4. BRAFTOVI [Suspect]
     Active Substance: ENCORAFENIB
     Dosage: 225 MG, DAILY
  5. MEKTOVI [Suspect]
     Active Substance: BINIMETINIB
     Indication: Malignant melanoma
     Dosage: 2 TABLETS (30 MG TOTAL) TWICE DAILY
     Route: 048
  6. MEKTOVI [Suspect]
     Active Substance: BINIMETINIB
     Dosage: 180 MG, 1X/DAY (4 CAPSULES BY MOUTH ONCE DAILY)
     Route: 048
  7. MEKTOVI [Suspect]
     Active Substance: BINIMETINIB
     Dosage: 45 MG, 2X/DAY (15MG TAKE 3 TABS (45MG TOTAL) BY MOUTH TWICE DAILY)
     Route: 048
     Dates: end: 202303
  8. MEKTOVI [Suspect]
     Active Substance: BINIMETINIB
     Dosage: 30 MG (2 TABS MEKTOVI)

REACTIONS (9)
  - Ocular discomfort [Not Recovered/Not Resolved]
  - Eye haemorrhage [Unknown]
  - Blindness [Unknown]
  - Retinal vein occlusion [Not Recovered/Not Resolved]
  - Thrombosis [Unknown]
  - Neoplasm progression [Unknown]
  - Product prescribing issue [Unknown]
  - Product dose omission issue [Unknown]
  - Skin lesion [Unknown]

NARRATIVE: CASE EVENT DATE: 20230301
